FAERS Safety Report 4771566-7 (Version None)
Quarter: 2005Q3

REPORT INFORMATION
  Report Type: 
  Country: None (occurrence: None)
  Receive Date: 20050914
  Receipt Date: 20050914
  Transmission Date: 20060218
  Serious: Yes (Disabling)
  Sender: FDA-Public Use
  Company Number: None

PATIENT
  Age: 83 Year
  Sex: Male
  Weight: 79.3795 kg

DRUGS (2)
  1. PIROXICAM [Suspect]
     Indication: ARTHRITIS
     Dosage: 20 MG PO DAILY
     Route: 048
     Dates: start: 20050831, end: 20050901
  2. ENALAPRIL [Concomitant]

REACTIONS (4)
  - PHOTOSENSITIVITY REACTION [None]
  - RASH ERYTHEMATOUS [None]
  - RASH PAPULAR [None]
  - RASH PRURITIC [None]
